FAERS Safety Report 6357932-7 (Version None)
Quarter: 2009Q3

REPORT INFORMATION
  Report Type: 
  Country: None (occurrence: None)
  Receive Date: 20090916
  Receipt Date: 20090908
  Transmission Date: 20100115
  Serious: Yes (Hospitalization)
  Sender: FDA-Public Use
  Company Number: FR-WYE-G04389309

PATIENT
  Sex: Female

DRUGS (10)
  1. EFFEXOR [Suspect]
     Route: 048
  2. ALDACTAZINE [Suspect]
     Indication: HYPERTENSION
     Dosage: 0.5 TABLETS 1 TIME DAILY FROM UNKNOWN DATE TO JUN-2009; THERAPY RESUMED 1 TABLET 2 TIMES/DAY IN 2009
     Route: 048
  3. PHYSIOTENS [Suspect]
     Indication: HYPERTENSION
     Dosage: 0.2 MG ONCE DAILY FROM UNKNOWN DATE TO JUN-2009; THERAPY RESUMED (0.2 MG 2 TIMES/DAY) IN 2009
     Route: 048
  4. INEXIUM [Concomitant]
     Dosage: UNKNOWN
  5. XANAX [Concomitant]
     Dosage: UNKNOWN
     Route: 048
  6. LEVOTHYROXINE SODIUM [Concomitant]
     Dosage: UNKNOWN
     Route: 048
  7. OSTRAM [Concomitant]
     Dosage: UNKNOWN
     Route: 048
  8. VITAMIN D3 [Concomitant]
     Dosage: UNKNOWN
     Route: 048
  9. ZYPREXA [Suspect]
     Indication: HALLUCINATION
     Dosage: 15 MG 1 TIME DAILY AND THEN 15 MG 2 TIMES DAILY (NO DATES PRECISION)
     Route: 048
  10. STABLON [Concomitant]
     Dosage: UNKNOWN
     Route: 048

REACTIONS (9)
  - CREATININE RENAL CLEARANCE DECREASED [None]
  - DEHYDRATION [None]
  - DISORIENTATION [None]
  - FALL [None]
  - GENERAL PHYSICAL HEALTH DETERIORATION [None]
  - OEDEMA PERIPHERAL [None]
  - ORTHOSTATIC HYPOTENSION [None]
  - PSYCHOMOTOR RETARDATION [None]
  - RHABDOMYOLYSIS [None]
